FAERS Safety Report 8904380 (Version 2)
Quarter: 2012Q4

REPORT INFORMATION
  Report Type: Report from Study
  Country: US (occurrence: US)
  Receive Date: 20121112
  Receipt Date: 20121115
  Transmission Date: 20130627
  Serious: Yes (Hospitalization)
  Sender: FDA-Public Use
  Company Number: US-MERCK-1211USA002425

PATIENT
  Age: 60 Year
  Sex: Female
  Weight: 51.7 kg

DRUGS (2)
  1. MK-0683 [Suspect]
     Indication: LUNG ADENOCARCINOMA METASTATIC
     Dosage: 200 mg, qd
     Dates: start: 20121026, end: 20121102
  2. PEMETREXED DISODIUM [Suspect]
     Indication: LUNG ADENOCARCINOMA METASTATIC
     Dosage: q500 mg/m2, once q21-days
     Dates: start: 20121029, end: 20121029

REACTIONS (1)
  - Perivascular dermatitis [Recovered/Resolved]
